FAERS Safety Report 8320510-4 (Version None)
Quarter: 2012Q2

REPORT INFORMATION
  Report Type: 
  Country: None (occurrence: None)
  Receive Date: 20120427
  Receipt Date: 20120427
  Transmission Date: 20120825
  Serious: Yes (Other)
  Sender: FDA-Public Use
  Company Number: None

PATIENT
  Age: 86 Year
  Sex: Male
  Weight: 80.739 kg

DRUGS (3)
  1. AZOPT [Suspect]
     Indication: GLAUCOMA
     Dosage: 1 DROP EACH EYE
     Route: 061
     Dates: start: 20120421, end: 20120425
  2. AZOPT [Concomitant]
  3. LUMIGAN [Concomitant]

REACTIONS (4)
  - SOMNOLENCE [None]
  - SLEEP DISORDER [None]
  - CONFUSIONAL STATE [None]
  - BALANCE DISORDER [None]
